FAERS Safety Report 4711760-4 (Version None)
Quarter: 2005Q2

REPORT INFORMATION
  Report Type: 
  Country: None (occurrence: None)
  Receive Date: 20050629
  Receipt Date: 20050523
  Transmission Date: 20051028
  Serious: No
  Sender: FDA-Public Use
  Company Number: 05P-163-0301039-00

PATIENT
  Age: 62 Year
  Sex: Female
  Weight: 77.1115 kg

DRUGS (6)
  1. HUMIRA [Suspect]
     Indication: RHEUMATOID ARTHRITIS
     Dosage: 40 MG, 1 IN 2 WK, SUBCUTANEOUS
     Route: 058
     Dates: start: 20050512
  2. CETIRIZINE HYDROCHLORIDE [Concomitant]
  3. FLUTICASONE PROPIONATE [Concomitant]
  4. METHOTREXATE [Concomitant]
  5. CELECOXIB [Concomitant]
  6. LOTREL [Concomitant]

REACTIONS (1)
  - SWELLING FACE [None]
